FAERS Safety Report 13016713 (Version 1)
Quarter: 2016Q4

REPORT INFORMATION
  Report Type: Spontaneous
  Country: US (occurrence: US)
  Receive Date: 20161212
  Receipt Date: 20161212
  Transmission Date: 20170207
  Serious: No
  Sender: FDA-Public Use
  Company Number: US-TORRENT-00001303

PATIENT
  Sex: Female
  Weight: 57 kg

DRUGS (1)
  1. ZOLPIDEM TARTRATE TABLET [Suspect]
     Active Substance: ZOLPIDEM TARTRATE
     Indication: INSOMNIA
     Dosage: 1 TABLET NIGHTLY
     Dates: start: 2016, end: 20161023

REACTIONS (2)
  - Headache [Unknown]
  - Somnolence [Unknown]
